FAERS Safety Report 22259590 (Version 7)
Quarter: 2024Q1

REPORT INFORMATION
  Report Type: Spontaneous
  Country: US (occurrence: US)
  Receive Date: 20230427
  Receipt Date: 20240209
  Transmission Date: 20240409
  Serious: No
  Sender: FDA-Public Use
  Company Number: US-PFIZER INC-PV202300049666

PATIENT
  Age: 13 Year
  Sex: Female

DRUGS (5)
  1. GENOTROPIN [Suspect]
     Active Substance: SOMATROPIN
     Dosage: 1.5 MG, DAILY
  2. GENOTROPIN [Suspect]
     Active Substance: SOMATROPIN
     Dosage: 1.4 MG, ALTERNATE WEEK (ALTERNATING 1.4MG AND 1.6MG 7 DAYS PER WEEK)
     Dates: start: 202302
  3. GENOTROPIN [Suspect]
     Active Substance: SOMATROPIN
     Dosage: 1.6 MG, ALTERNATE WEEK (ALTERNATING 1.4MG AND 1.6MG 7 DAYS PER WEEK)
     Dates: start: 202302
  4. GENOTROPIN [Suspect]
     Active Substance: SOMATROPIN
     Dosage: 1.4 MG, ALTERNATE DAY, (1.4MG ALT WITH 1.6MG EVERY OTHER DAY, 7 DAYS A WEEK)
  5. GENOTROPIN [Suspect]
     Active Substance: SOMATROPIN
     Dosage: 1.6 MG, ALTERNATE DAY, (1.4MG ALT WITH 1.6MG EVERY OTHER DAY, 7 DAYS A WEEK)

REACTIONS (3)
  - Product prescribing error [Unknown]
  - Poor quality device used [Unknown]
  - Device leakage [Unknown]
